FAERS Safety Report 8172720-7 (Version None)
Quarter: 2012Q1

REPORT INFORMATION
  Report Type: 
  Country: None (occurrence: None)
  Receive Date: 20120229
  Receipt Date: 20120224
  Transmission Date: 20120608
  Serious: Yes (Other)
  Sender: FDA-Public Use
  Company Number: US-B.I. PHARMACEUTICALS,INC./RIDGEFIELD-2012-BP-00100BP

PATIENT
  Sex: Female

DRUGS (2)
  1. ALBUTEROL [Concomitant]
  2. COMBIVENT [Suspect]

REACTIONS (3)
  - DYSPNOEA [None]
  - ANAPHYLACTIC REACTION [None]
  - CONDITION AGGRAVATED [None]
